FAERS Safety Report 8251042-X (Version None)
Quarter: 2012Q2

REPORT INFORMATION
  Report Type: 
  Country: None (occurrence: None)
  Receive Date: 20120402
  Receipt Date: 20120322
  Transmission Date: 20120825
  Serious: No
  Sender: FDA-Public Use
  Company Number: US-B.I. PHARMACEUTICALS,INC./RIDGEFIELD-2012-BP-05414BP

PATIENT
  Age: 82 Year
  Sex: Male

DRUGS (17)
  1. ARICEPT [Concomitant]
  2. AMIODARONE HCL [Concomitant]
  3. MAGNESIUM [Concomitant]
  4. GLIPIZIDE [Concomitant]
  5. SPIRIVA [Concomitant]
  6. PRADAXA [Suspect]
  7. PAXIL [Concomitant]
  8. PROSCAR [Concomitant]
  9. WELCHOL [Concomitant]
  10. COREG [Concomitant]
  11. NAMENDA [Concomitant]
  12. LIPITOR [Concomitant]
  13. COZAAR [Concomitant]
  14. PREDNISONE TAB [Concomitant]
  15. FERROUS SULFATE TAB [Concomitant]
  16. SINGULAIR [Concomitant]
  17. VITAMIN D [Concomitant]

REACTIONS (1)
  - SKIN ULCER [None]
